FAERS Safety Report 7941788-2 (Version None)
Quarter: 2011Q4

REPORT INFORMATION
  Report Type: 
  Country: None (occurrence: None)
  Receive Date: 20111128
  Receipt Date: 20111121
  Transmission Date: 20120403
  Serious: Yes (Other)
  Sender: FDA-Public Use
  Company Number: CN-PFIZER INC-2011284972

PATIENT
  Age: 83 Year
  Sex: Male

DRUGS (2)
  1. AMLODIPINE BESYLATE [Suspect]
     Dosage: 5 MG, 2X/DAY
     Route: 048
  2. AMLODIPINE BESYLATE [Suspect]
     Indication: HYPERTENSION
     Dosage: 5 MG, 1X/DAY
     Route: 048

REACTIONS (5)
  - PLEURAL EFFUSION [None]
  - PERICARDIAL EFFUSION [None]
  - GENERALISED OEDEMA [None]
  - CHEST DISCOMFORT [None]
  - DYSPNOEA [None]
